FAERS Safety Report 7315502-8 (Version None)
Quarter: 2011Q1

REPORT INFORMATION
  Report Type: 
  Country: None (occurrence: None)
  Receive Date: 20110218
  Receipt Date: 20110218
  Transmission Date: 20110831
  Serious: Yes (Hospitalization)
  Sender: FDA-Public Use
  Company Number: None

PATIENT
  Age: 67 Year
  Sex: Male
  Weight: 113.7 kg

DRUGS (6)
  1. LIPITOR [Concomitant]
  2. TOPROL-XL [Concomitant]
  3. LISINOPRIL [Concomitant]
  4. GLYBURIDE AND METFORMIN HYDROCHLORIDE [Concomitant]
  5. IBUPROFEN [Suspect]
     Indication: OSTEOARTHRITIS
     Dosage: 200MG BID PO CHRONIC
     Route: 048
  6. ASPIRIN [Suspect]
     Dosage: 325MG BID PO CHRONIC
     Route: 048

REACTIONS (5)
  - AZOTAEMIA [None]
  - IRON DEFICIENCY ANAEMIA [None]
  - HAEMATEMESIS [None]
  - UPPER GASTROINTESTINAL HAEMORRHAGE [None]
  - MELAENA [None]
